FAERS Safety Report 9493442 (Version 1)
Quarter: 2013Q3

REPORT INFORMATION
  Report Type: Spontaneous
  Country: US (occurrence: US)
  Receive Date: 20130902
  Receipt Date: 20130902
  Transmission Date: 20140515
  Serious: Yes (Hospitalization)
  Sender: FDA-Public Use
  Company Number: US-MERCK-1308USA014322

PATIENT
  Sex: Female

DRUGS (2)
  1. ZETIA [Suspect]
     Indication: BLOOD CHOLESTEROL INCREASED
     Dosage: UNK
     Route: 048
     Dates: start: 201307, end: 20130815
  2. AMLODIPINE [Concomitant]

REACTIONS (7)
  - Dizziness [Not Recovered/Not Resolved]
  - Local swelling [Not Recovered/Not Resolved]
  - Tenderness [Not Recovered/Not Resolved]
  - Abasia [Not Recovered/Not Resolved]
  - Dehydration [Not Recovered/Not Resolved]
  - Throat tightness [Not Recovered/Not Resolved]
  - Pneumonia [Not Recovered/Not Resolved]
